FAERS Safety Report 8777056 (Version 1)
Quarter: 2012Q4

REPORT INFORMATION
  Report Type: 
  Country: CN (occurrence: CN)
  Receive Date: 20120911
  Receipt Date: 20120911
  Transmission Date: 20130627
  Serious: Yes (Other)
  Sender: FDA-Public Use
  Company Number: CN-BRISTOL-MYERS SQUIBB COMPANY-16879256

PATIENT
  Age: 22 Year
  Sex: Male

DRUGS (1)
  1. ENTECAVIR TABS [Suspect]
     Indication: HEPATITIS B
     Route: 048
     Dates: start: 20100112, end: 20100315

REACTIONS (4)
  - Depression [Recovering/Resolving]
  - Dizziness [Recovering/Resolving]
  - Fatigue [Recovering/Resolving]
  - Sleep disorder [Recovering/Resolving]
